FAERS Safety Report 7380301-8 (Version None)
Quarter: 2011Q1

REPORT INFORMATION
  Report Type: 
  Country: None (occurrence: None)
  Receive Date: 20110329
  Receipt Date: 20110316
  Transmission Date: 20110831
  Serious: No
  Sender: FDA-Public Use
  Company Number: GB-ELI_LILLY_AND_COMPANY-GB201012006442

PATIENT
  Sex: Male
  Weight: 21.2 kg

DRUGS (4)
  1. FERSAMAL [Concomitant]
     Indication: ATTENTION DEFICIT/HYPERACTIVITY DISORDER
     Dosage: 5 ML, 2/D
     Route: 048
     Dates: start: 20100104
  2. STRATTERA [Suspect]
     Dosage: 40 MG, UNK
     Dates: start: 20101018, end: 20101208
  3. EQUASYM [Concomitant]
     Indication: ATTENTION DEFICIT/HYPERACTIVITY DISORDER
     Dosage: 20 MG, UNK
     Route: 048
     Dates: start: 20100104
  4. STRATTERA [Suspect]
     Indication: ATTENTION DEFICIT/HYPERACTIVITY DISORDER
     Dosage: 10 MG, UNK
     Route: 048
     Dates: start: 20101011, end: 20101017

REACTIONS (6)
  - CRYING [None]
  - EMOTIONAL DISORDER [None]
  - OVERDOSE [None]
  - TREMOR [None]
  - EMOTIONAL DISTRESS [None]
  - HALLUCINATION [None]
